FAERS Safety Report 13819742 (Version 1)
Quarter: 2017Q3

REPORT INFORMATION
  Report Type: Spontaneous
  Country: US (occurrence: US)
  Receive Date: 20170801
  Receipt Date: 20170801
  Transmission Date: 20171127
  Serious: Yes (Other)
  Sender: FDA-Public Use
  Company Number: US-BAYER-2017-139488

PATIENT
  Age: 6 Year
  Sex: Female
  Weight: 53 kg

DRUGS (4)
  1. BAYER ASPIRIN [Suspect]
     Active Substance: ASPIRIN
     Indication: PAIN
     Dosage: UNK
     Route: 048
  2. ATORVASTATIN [Concomitant]
     Active Substance: ATORVASTATIN
  3. BAYER ASPIRIN [Suspect]
     Active Substance: ASPIRIN
     Indication: INSOMNIA
  4. BAYER ASPIRIN [Suspect]
     Active Substance: ASPIRIN
     Indication: PROPHYLAXIS

REACTIONS (3)
  - Incorrect drug administration duration [None]
  - Drug dependence [Unknown]
  - Drug administered to patient of inappropriate age [Unknown]
